FAERS Safety Report 19155841 (Version 1)
Quarter: 2021Q2

REPORT INFORMATION
  Report Type: Spontaneous
  Country: US (occurrence: US)
  Receive Date: 20210419
  Receipt Date: 20210419
  Transmission Date: 20210717
  Serious: Yes (Death, Other)
  Sender: FDA-Public Use
  Company Number: US-PURDUE-USA-2020-0226324

PATIENT
  Age: 44 Year
  Sex: Male

DRUGS (1)
  1. OXYCONTIN [Suspect]
     Active Substance: OXYCODONE HYDROCHLORIDE
     Indication: BACK INJURY
     Dosage: UNK
     Route: 048

REACTIONS (6)
  - Faeces discoloured [Unknown]
  - Completed suicide [Fatal]
  - Drug dependence [Unknown]
  - Gastrointestinal motility disorder [Unknown]
  - Drug withdrawal syndrome [Unknown]
  - Depression [Unknown]
